FAERS Safety Report 17080562 (Version 2)
Quarter: 2023Q4

REPORT INFORMATION
  Report Type: Spontaneous
  Country: US (occurrence: US)
  Receive Date: 20191127
  Receipt Date: 20231020
  Transmission Date: 20240109
  Serious: Yes (Other)
  Sender: FDA-Public Use
  Company Number: US-HIKMA PHARMACEUTICALS USA INC.-US-H14001-19-05899

PATIENT
  Age: 70 Year
  Sex: Female

DRUGS (2)
  1. DURAMORPH [Suspect]
     Active Substance: MORPHINE SULFATE
     Indication: Spinal pain
     Dosage: 0.391 MILLIGRAM, SIMPLE CONTINUOUS INFUSION AND AT A DAILY DOSE OF 0.3915 MG, RECEIVED AS INFUSION B
     Route: 037
  2. DURAMORPH [Suspect]
     Active Substance: MORPHINE SULFATE
     Dosage: INFUSION BOLUS
     Route: 037

REACTIONS (1)
  - Catheter site granuloma [Recovered/Resolved]

NARRATIVE: CASE EVENT DATE: 20171020
